FAERS Safety Report 9657774 (Version 2)
Quarter: 2013Q4

REPORT INFORMATION
  Report Type: Spontaneous
  Country: US (occurrence: US)
  Receive Date: 20131030
  Receipt Date: 20131104
  Transmission Date: 20140711
  Serious: Yes (Hospitalization, Other)
  Sender: FDA-Public Use
  Company Number: US-ROCHE-1293459

PATIENT
  Age: 52 Year
  Sex: Female

DRUGS (4)
  1. RITUXAN [Suspect]
     Indication: UVEITIS
     Route: 042
     Dates: start: 20130910, end: 20131015
  2. RITUXAN [Suspect]
     Indication: SCLERITIS
  3. RITUXAN [Suspect]
     Indication: EXTRAOCULAR MUSCLE DISORDER
  4. PROTONIX (UNITED STATES) [Concomitant]
     Indication: GASTROOESOPHAGEAL REFLUX DISEASE

REACTIONS (14)
  - Serum sickness [Recovering/Resolving]
  - Pain [Unknown]
  - Tremor [Recovered/Resolved]
  - Body temperature increased [Recovered/Resolved]
  - Yellow skin [Unknown]
  - Loss of consciousness [Unknown]
  - Chills [Recovered/Resolved]
  - Ear pruritus [Recovered/Resolved]
  - Swelling face [Recovered/Resolved]
  - Pharyngeal oedema [Recovered/Resolved]
  - Back pain [Unknown]
  - Rash [Unknown]
  - Hepatic enzyme increased [Unknown]
  - Product quality issue [Unknown]
